FAERS Safety Report 9230092 (Version 2)
Quarter: 2013Q2

REPORT INFORMATION
  Report Type: Spontaneous
  Country: US (occurrence: US)
  Receive Date: 20130415
  Receipt Date: 20130516
  Transmission Date: 20140414
  Serious: Yes (Hospitalization, Other)
  Sender: FDA-Public Use
  Company Number: US-BAYER-2013-045122

PATIENT
  Age: 41 Year
  Sex: Female
  Weight: 95 kg

DRUGS (5)
  1. YASMIN [Suspect]
     Dosage: UNK
     Dates: start: 2002, end: 2003
  2. YAZ [Suspect]
     Dosage: UNK
     Dates: start: 2002, end: 2003
  3. OCELLA [Suspect]
     Dosage: UNK
     Dates: start: 2002, end: 2003
  4. NAPROXEN [Concomitant]
  5. IBUPROFEN [Concomitant]

REACTIONS (9)
  - Deep vein thrombosis [None]
  - Injury [None]
  - Pain [None]
  - Thrombosis [None]
  - Anxiety [None]
  - Emotional distress [None]
  - General physical health deterioration [None]
  - Pain [None]
  - Abdominal pain [None]
